FAERS Safety Report 25503088 (Version 1)
Quarter: 2025Q3

REPORT INFORMATION
  Report Type: Spontaneous
  Country: GB (occurrence: GB)
  Receive Date: 20250702
  Receipt Date: 20250702
  Transmission Date: 20251021
  Serious: Yes (Hospitalization, Other)
  Sender: Steriscience PTE
  Company Number: GB-STERISCIENCE B.V.-2025-ST-001257

PATIENT
  Age: 7 Decade
  Sex: Female

DRUGS (5)
  1. MIDAZOLAM [Suspect]
     Active Substance: MIDAZOLAM
     Indication: Pain
  2. DEXAMETHASONE [Suspect]
     Active Substance: DEXAMETHASONE
     Indication: Intracranial pressure increased
     Route: 065
  3. LEVETIRACETAM [Suspect]
     Active Substance: LEVETIRACETAM
     Indication: Seizure
  4. OXYCODONE [Suspect]
     Active Substance: OXYCODONE
     Indication: Pain
  5. FAMOTIDINE [Concomitant]
     Active Substance: FAMOTIDINE
     Indication: Prophylaxis
     Route: 065

REACTIONS (3)
  - Delirium [Unknown]
  - Disease progression [Unknown]
  - Off label use [Unknown]
